FAERS Safety Report 8063961-8 (Version None)
Quarter: 2012Q1

REPORT INFORMATION
  Report Type: 
  Country: None (occurrence: None)
  Receive Date: 20120123
  Receipt Date: 20120113
  Transmission Date: 20120608
  Serious: Yes (Other)
  Sender: FDA-Public Use
  Company Number: US-BAYER-2011-074765

PATIENT
  Age: 27 Year
  Sex: Female
  Weight: 80.726 kg

DRUGS (5)
  1. YAZ [Suspect]
     Indication: CONTRACEPTION
     Dosage: UNK
     Dates: start: 20050601, end: 20070101
  2. SYNTHROID [Concomitant]
  3. CEPHALEXIN [Concomitant]
  4. YASMIN [Suspect]
     Indication: CONTRACEPTION
     Dosage: UNK
     Dates: start: 20050601, end: 20070101
  5. ACIPHEX [Concomitant]

REACTIONS (4)
  - DEEP VEIN THROMBOSIS [None]
  - INJURY [None]
  - PAIN [None]
  - ABORTION [None]
